FAERS Safety Report 12128173 (Version 2)
Quarter: 2016Q1

REPORT INFORMATION
  Report Type: Spontaneous
  Country: DE (occurrence: DE)
  Receive Date: 20160229
  Receipt Date: 20160229
  Transmission Date: 20160526
  Serious: Yes (Hospitalization)
  Sender: FDA-Public Use
  Company Number: DE-SA-2016SA035325

PATIENT
  Age: 46 Year
  Sex: Male

DRUGS (1)
  1. COAPROVEL [Suspect]
     Active Substance: HYDROCHLOROTHIAZIDE\IRBESARTAN
     Dosage: 20 PILLS COAPROVEL 150/ 12.5 MG
     Route: 065

REACTIONS (6)
  - Somnolence [Unknown]
  - Intentional overdose [Unknown]
  - Miosis [Unknown]
  - Intentional product misuse [Unknown]
  - Erythema [Unknown]
  - Confusional state [Unknown]
